FAERS Safety Report 14662839 (Version 1)
Quarter: 2018Q1

REPORT INFORMATION
  Report Type: Spontaneous
  Country: IN (occurrence: IN)
  Receive Date: 20180321
  Receipt Date: 20180321
  Transmission Date: 20180509
  Serious: No
  Sender: FDA-Public Use
  Company Number: IN-LUPIN PHARMACEUTICALS INC.-2017-05750

PATIENT
  Age: 18 Month
  Sex: Male

DRUGS (3)
  1. LUPICEF SYRUP DRY 50 MG/ 5 ML [Suspect]
     Active Substance: CEFIXIME
     Indication: PYREXIA
     Dosage: 5 ML, BID
     Route: 048
     Dates: start: 20170928, end: 20170929
  2. LUPICEF SYRUP DRY 50 MG/ 5 ML [Suspect]
     Active Substance: CEFIXIME
     Indication: FURUNCLE
  3. IBUZONE PLUS 60 ML [Concomitant]
     Active Substance: ACETAMINOPHEN\IBUPROFEN
     Indication: PYREXIA
     Dosage: 5 ML, OD
     Dates: start: 20170928

REACTIONS (2)
  - Swelling face [Not Recovered/Not Resolved]
  - Pruritus [Not Recovered/Not Resolved]

NARRATIVE: CASE EVENT DATE: 20170928
